FAERS Safety Report 10150355 (Version 1)
Quarter: 2014Q2

REPORT INFORMATION
  Report Type: Spontaneous
  Country: DE (occurrence: DE)
  Receive Date: 20140502
  Receipt Date: 20140502
  Transmission Date: 20141212
  Serious: Yes (Hospitalization)
  Sender: FDA-Public Use
  Company Number: PHHY2014DE052154

PATIENT
  Sex: Female
  Weight: 74 kg

DRUGS (10)
  1. AFINITOR [Suspect]
     Indication: BREAST CANCER METASTATIC
     Dosage: 10 MG, QD
     Route: 048
     Dates: start: 20131002, end: 20131114
  2. AFINITOR [Suspect]
     Dosage: UNK
     Route: 048
     Dates: start: 20131219
  3. XGEVA [Suspect]
     Indication: METASTASES TO BONE
     Dosage: 120 MG, UNK
     Route: 058
     Dates: start: 201310
  4. EXEMESTANE [Concomitant]
  5. METFORMIN [Concomitant]
  6. MIRTAZAPIN [Concomitant]
  7. TRAMADOL [Concomitant]
  8. RAMIPRIL [Concomitant]
  9. PANTOZOL [Concomitant]
  10. BISOPROLOL [Concomitant]

REACTIONS (1)
  - Osteonecrosis of jaw [Recovered/Resolved]
